FAERS Safety Report 16892156 (Version 1)
Quarter: 2019Q4

REPORT INFORMATION
  Report Type: Spontaneous
  Country: CA (occurrence: CA)
  Receive Date: 20191007
  Receipt Date: 20191007
  Transmission Date: 20200122
  Serious: Yes (Hospitalization, Other)
  Sender: FDA-Public Use
  Company Number: CA-TEVA-2019-CA-1116950

PATIENT
  Age: 52 Year
  Sex: Female

DRUGS (27)
  1. 3TC [Concomitant]
     Active Substance: LAMIVUDINE
  2. BENADRYL [Concomitant]
     Active Substance: DIPHENHYDRAMINE HYDROCHLORIDE
  3. IMODIUM [Concomitant]
     Active Substance: LOPERAMIDE HYDROCHLORIDE
  4. LITHIUM. [Concomitant]
     Active Substance: LITHIUM
  5. CLONAZEPAM. [Suspect]
     Active Substance: CLONAZEPAM
     Indication: HYPOMANIA
     Dosage: 3 MILLIGRAM DAILY;
     Route: 048
  6. QUETIAPINE. [Suspect]
     Active Substance: QUETIAPINE
     Indication: PSYCHOTIC DISORDER
     Dosage: 50 MILLIGRAM DAILY;
     Route: 048
  7. CALCIUM CARBONATE. [Concomitant]
     Active Substance: CALCIUM CARBONATE
  8. TRAZODONE [Suspect]
     Active Substance: TRAZODONE HYDROCHLORIDE
     Indication: DEPRESSION
     Dosage: 50 MILLIGRAM DAILY;
     Route: 048
  9. PROCYCLIDINE HCL [Suspect]
     Active Substance: PROCYCLIDINE HYDROCHLORIDE
     Indication: PROPHYLAXIS
     Dosage: 2.5 MILLIGRAM DAILY;
     Route: 048
  10. CHLORAL HYDRATE [Concomitant]
     Active Substance: CHLORAL HYDRATE
  11. DIAZEPAM. [Suspect]
     Active Substance: DIAZEPAM
     Route: 065
  12. KALETRA [Concomitant]
     Active Substance: LOPINAVIR\RITONAVIR
  13. OLANZAPINE. [Suspect]
     Active Substance: OLANZAPINE
     Indication: PSYCHOTIC DISORDER
     Dosage: 12.5 MILLIGRAM DAILY;
     Route: 065
  14. RISPERIDONE. [Suspect]
     Active Substance: RISPERIDONE
     Indication: PSYCHOTIC DISORDER
     Dosage: 3 MILLIGRAM DAILY;
     Route: 048
  15. APTIVUS [Suspect]
     Active Substance: TIPRANAVIR
     Indication: HIV INFECTION
     Dosage: 500 MILLIGRAM DAILY;
     Route: 048
  16. DIAZEPAM. [Suspect]
     Active Substance: DIAZEPAM
     Indication: DEPRESSION
     Dosage: 500 MILLIGRAM DAILY;
     Route: 048
  17. TEGRETOL [Suspect]
     Active Substance: CARBAMAZEPINE
     Indication: HYPOMANIA
     Dosage: 400 MILLIGRAM DAILY;
     Route: 065
  18. ACETAMINOPHEN. [Suspect]
     Active Substance: ACETAMINOPHEN
     Indication: PAIN IN EXTREMITY
     Route: 048
  19. OLANZAPINE. [Suspect]
     Active Substance: OLANZAPINE
     Dosage: 5 MILLIGRAM DAILY;
     Route: 048
  20. BISACODYL. [Concomitant]
     Active Substance: BISACODYL
  21. LACTULOSE SYRUP [Concomitant]
     Active Substance: LACTULOSE
  22. NYSTATIN. [Concomitant]
     Active Substance: NYSTATIN
  23. DIAZEPAM. [Suspect]
     Active Substance: DIAZEPAM
     Dosage: 1500 MILLIGRAM DAILY;
     Route: 065
  24. ABACAVIR. [Concomitant]
     Active Substance: ABACAVIR
  25. ATOVAQUONE W/PROGUANIL [Concomitant]
  26. MULTIVITAMINE(S) [Concomitant]
     Active Substance: VITAMINS
  27. T-20 [Concomitant]
     Active Substance: ENFUVIRTIDE

REACTIONS (12)
  - Nausea [Unknown]
  - Hepatotoxicity [Unknown]
  - Jaundice cholestatic [Unknown]
  - Hepatic enzyme increased [Unknown]
  - Psychotic disorder [Unknown]
  - Pneumonia [Unknown]
  - Schizophrenia [Unknown]
  - Blood bilirubin increased [Unknown]
  - Cholelithiasis [Unknown]
  - Condition aggravated [Unknown]
  - Hypomania [Unknown]
  - Vomiting [Unknown]
